FAERS Safety Report 9697035 (Version 2)
Quarter: 2014Q1

REPORT INFORMATION
  Report Type: Spontaneous
  Country: GB (occurrence: GB)
  Receive Date: 20131120
  Receipt Date: 20140307
  Transmission Date: 20141002
  Serious: Yes (Congenital Anomaly, Other)
  Sender: FDA-Public Use
  Company Number: GB-PFIZER INC-2013326401

PATIENT
  Sex: Female

DRUGS (1)
  1. SULFASALAZINE [Suspect]
     Dosage: 1 G, 2X/DAY
     Route: 064

REACTIONS (4)
  - Maternal exposure during pregnancy [Unknown]
  - Microtia [Unknown]
  - Conductive deafness [Unknown]
  - Urethral meatus stenosis [Unknown]
